FAERS Safety Report 9993796 (Version 1)
Quarter: 2014Q1

REPORT INFORMATION
  Report Type: Spontaneous
  Country: US (occurrence: US)
  Receive Date: 20140310
  Receipt Date: 20140310
  Transmission Date: 20141002
  Serious: No
  Sender: FDA-Public Use
  Company Number: US-AMGEN-USASP2013018458

PATIENT
  Age: 87 Year
  Sex: Female

DRUGS (1)
  1. SENSIPAR [Suspect]
     Indication: HYPERPARATHYROIDISM PRIMARY
     Dosage: UNK
     Dates: start: 2006, end: 2010

REACTIONS (6)
  - Dizziness [Unknown]
  - Blood calcium increased [Unknown]
  - Cystitis [Unknown]
  - Incontinence [Unknown]
  - Blood urine present [Unknown]
  - Urine abnormality [Unknown]
